FAERS Safety Report 9262696 (Version 1)
Quarter: 2013Q2

REPORT INFORMATION
  Report Type: Spontaneous
  Country: US (occurrence: US)
  Receive Date: 20130430
  Receipt Date: 20130430
  Transmission Date: 20140414
  Serious: No
  Sender: FDA-Public Use
  Company Number: US-PFIZER INC-2013130877

PATIENT
  Age: 44 Year
  Sex: Male
  Weight: 108 kg

DRUGS (2)
  1. GEODON [Suspect]
     Indication: SCHIZOPHRENIA
     Dosage: 160 MG (2 ORAL CAPSULE OF 80MG), 1X/DAY
     Route: 048
     Dates: start: 2008
  2. PRAZOSIN [Concomitant]
     Indication: HYPERTENSION
     Dosage: UNK

REACTIONS (2)
  - Hypoaesthesia [Not Recovered/Not Resolved]
  - Asthenia [Not Recovered/Not Resolved]
